FAERS Safety Report 25287543 (Version 3)
Quarter: 2025Q4

REPORT INFORMATION
  Report Type: Spontaneous
  Country: US (occurrence: US)
  Receive Date: 20250509
  Receipt Date: 20251229
  Transmission Date: 20260117
  Serious: No
  Sender: MERCK SHARP & DOHME LLC
  Company Number: US-009507513-2277050

PATIENT
  Sex: Female
  Weight: 83.4 kg

DRUGS (34)
  1. WINREVAIR [Suspect]
     Active Substance: SOTATERCEPT-CSRK
     Indication: Product used for unknown indication
     Dates: start: 20250725
  2. WINREVAIR [Suspect]
     Active Substance: SOTATERCEPT-CSRK
     Dates: start: 20250731
  3. WINREVAIR [Suspect]
     Active Substance: SOTATERCEPT-CSRK
  4. WINREVAIR [Suspect]
     Active Substance: SOTATERCEPT-CSRK
  5. REMODULIN [Suspect]
     Active Substance: TREPROSTINIL
     Indication: Pulmonary arterial hypertension
     Dosage: 1.0 MG/ML, SELF FILL WITH 3 ML/ CASSETTE, RATE OF 110 MCL/HOUR
     Route: 058
  6. REMODULIN [Suspect]
     Active Substance: TREPROSTINIL
     Indication: Pulmonary arterial hypertension
     Dosage: 5.0 MG/ML, SELF FILL WITH 2.1 ML/ CASSETTE, RATE OF 21 MCL/HOUR
     Route: 058
     Dates: start: 20230912
  7. FUROSEMIDE [Concomitant]
     Active Substance: FUROSEMIDE
  8. CLARITIN [Concomitant]
     Active Substance: LORATADINE
  9. FAMOTIDINE [Concomitant]
     Active Substance: FAMOTIDINE
  10. IMODIUM [Concomitant]
     Active Substance: LOPERAMIDE HYDROCHLORIDE
  11. KETAMINE HYDROCHLORIDE [Concomitant]
     Active Substance: KETAMINE HYDROCHLORIDE
  12. FLONASE ALLERGY RELIEF [Concomitant]
     Active Substance: FLUTICASONE PROPIONATE
  13. POTASSIUM CHLORIDE [Concomitant]
     Active Substance: POTASSIUM CHLORIDE
  14. PREPARATION H HYDROCORTISONE [Concomitant]
     Active Substance: HYDROCORTISONE
  15. KETOPROFEN [Concomitant]
     Active Substance: KETOPROFEN
  16. LIDOCAINE HYDROCHLORIDE [Concomitant]
     Active Substance: LIDOCAINE HYDROCHLORIDE
  17. DOCUSATE SODIUM [Concomitant]
     Active Substance: DOCUSATE SODIUM
  18. LETAIRIS [Concomitant]
     Active Substance: AMBRISENTAN
  19. FEXOFENADINE HYDROCHLORIDE [Concomitant]
     Active Substance: FEXOFENADINE HYDROCHLORIDE
  20. NAPROXEN SODIUM [Concomitant]
     Active Substance: NAPROXEN SODIUM
  21. OMEPRAZOLE [Concomitant]
     Active Substance: OMEPRAZOLE
  22. AMITRIPTYLINE [Concomitant]
     Active Substance: AMITRIPTYLINE
  23. GABAPENTIN [Concomitant]
     Active Substance: GABAPENTIN
  24. LECITHIN [Concomitant]
     Active Substance: LECITHIN
  25. TADALAFIL [Suspect]
     Active Substance: TADALAFIL
     Indication: Product used for unknown indication
  26. POLOXAMER [Concomitant]
     Active Substance: POLOXAMER
  27. WIXELA INHUB [Concomitant]
     Active Substance: FLUTICASONE PROPIONATE\SALMETEROL XINAFOATE
  28. ORENITRAM [Suspect]
     Active Substance: TREPROSTINIL
     Indication: Pulmonary arterial hypertension
     Route: 048
     Dates: start: 20250722
  29. ORENITRAM [Suspect]
     Active Substance: TREPROSTINIL
     Indication: Pulmonary arterial hypertension
     Dosage: TIME INTERVAL: 0.33333333 DAYS
     Route: 048
     Dates: start: 2025, end: 2025
  30. ORENITRAM [Suspect]
     Active Substance: TREPROSTINIL
     Indication: Pulmonary arterial hypertension
     Dosage: TIME INTERVAL: 0.33333333 DAYS
     Route: 048
     Dates: start: 2025, end: 2025
  31. ORENITRAM [Suspect]
     Active Substance: TREPROSTINIL
     Indication: Pulmonary arterial hypertension
     Dosage: TIME INTERVAL: 0.33333333 DAYS
     Route: 048
     Dates: start: 2025, end: 2025
  32. DULOXETINE HYDROCHLORIDE [Concomitant]
     Active Substance: DULOXETINE HYDROCHLORIDE
  33. CRANBERRY [Concomitant]
     Active Substance: CRANBERRY
  34. TADALAFIL [Concomitant]
     Active Substance: TADALAFIL

REACTIONS (7)
  - Mouth haemorrhage [Unknown]
  - Diarrhoea [Unknown]
  - Injection site pain [Unknown]
  - Headache [Unknown]
  - Flushing [Unknown]
  - Injection site discomfort [Unknown]
  - Pain in jaw [Unknown]

NARRATIVE: CASE EVENT DATE: 20250101
